FAERS Safety Report 8974537 (Version 1)
Quarter: 2012Q4

REPORT INFORMATION
  Report Type: 
  Country: US (occurrence: US)
  Receive Date: 20121219
  Receipt Date: 20121219
  Transmission Date: 20130627
  Serious: No
  Sender: FDA-Public Use
  Company Number: US-AMGEN-USASP2012055557

PATIENT
  Age: 66 Year
  Sex: Female
  Weight: 57.14 kg

DRUGS (3)
  1. PROLIA [Suspect]
     Indication: PRODUCT USED FOR UNKNOWN INDICATION
     Dosage: 60 mg, q6mo
     Route: 030
     Dates: start: 20120823
  2. SILVER COLLOIDAL [Concomitant]
     Dosage: UNK
  3. SYNTHROID [Concomitant]
     Dosage: 75 mug, qd

REACTIONS (5)
  - Hyperchlorhydria [Unknown]
  - Jaw disorder [Unknown]
  - Disinhibition [Unknown]
  - Influenza like illness [Unknown]
  - Anxiety [Unknown]
